FAERS Safety Report 18495849 (Version 1)
Quarter: 2020Q4

REPORT INFORMATION
  Report Type: Spontaneous
  Country: US (occurrence: US)
  Receive Date: 20201112
  Receipt Date: 20201112
  Transmission Date: 20210114
  Serious: Yes (Other)
  Sender: FDA-Public Use
  Company Number: None

PATIENT
  Age: 85 Year
  Sex: Female
  Weight: 57.6 kg

DRUGS (6)
  1. LETROZOLE 2.5MG [Concomitant]
     Active Substance: LETROZOLE
  2. PLAVIX [Concomitant]
     Active Substance: CLOPIDOGREL BISULFATE
  3. ALLOPIRUNOL 100MG [Concomitant]
  4. HUMULIN 70/30 [Concomitant]
     Active Substance: INSULIN HUMAN
  5. PIQRAY [Suspect]
     Active Substance: ALPELISIB
     Indication: BREAST CANCER
     Route: 048
     Dates: start: 20201006
  6. LOSARTAN 50MG [Concomitant]
     Active Substance: LOSARTAN

REACTIONS (2)
  - Blood glucose increased [None]
  - Ankle fracture [None]
